FAERS Safety Report 6384999-2 (Version None)
Quarter: 2009Q4

REPORT INFORMATION
  Report Type: 
  Country: None (occurrence: None)
  Receive Date: 20091002
  Receipt Date: 20090922
  Transmission Date: 20100525
  Serious: Yes (Hospitalization)
  Sender: FDA-Public Use
  Company Number: DE-ROCHE-658605

PATIENT
  Sex: Male
  Weight: 21.4 kg

DRUGS (2)
  1. MYCOPHENOLATE MOFETIL [Suspect]
     Route: 065
  2. CYCLOSPORINE [Suspect]
     Route: 065

REACTIONS (3)
  - BENIGN INTRACRANIAL HYPERTENSION [None]
  - CAMPYLOBACTER GASTROENTERITIS [None]
  - HERPANGINA [None]
